FAERS Safety Report 5875851-7 (Version None)
Quarter: 2008Q3

REPORT INFORMATION
  Report Type: 
  Country: None (occurrence: None)
  Receive Date: 20080909
  Receipt Date: 20080904
  Transmission Date: 20090109
  Serious: Yes (Death)
  Sender: FDA-Public Use
  Company Number: PL-PFIZER INC-2008074491

PATIENT
  Sex: Male
  Weight: 78 kg

DRUGS (6)
  1. IRINOTECAN HCL [Suspect]
     Indication: COLORECTAL CANCER
     Dosage: DAILY DOSE:349MG
     Dates: start: 20080407, end: 20080818
  2. BLINDED SU11248 (SU011248) [Suspect]
     Indication: COLORECTAL CANCER
     Route: 048
     Dates: start: 20080407, end: 20080829
  3. FLUOROURACIL [Suspect]
     Indication: COLORECTAL CANCER
     Dates: start: 20080407, end: 20080820
  4. CALCIUM FOLINATE [Suspect]
     Indication: COLORECTAL CANCER
     Dates: start: 20080407, end: 20080818
  5. FENTANYL [Suspect]
     Indication: PAIN
     Dosage: DAILY DOSE:25MCG-FREQ:CONTINUOSLY
  6. KETOPROFEN [Concomitant]
     Indication: PAIN
     Dosage: DAILY DOSE:100MG

REACTIONS (1)
  - COLONIC OBSTRUCTION [None]
